FAERS Safety Report 9472277 (Version 1)
Quarter: 2013Q3

REPORT INFORMATION
  Report Type: Spontaneous
  Country: US (occurrence: None)
  Receive Date: 20130821
  Receipt Date: 20130821
  Transmission Date: 20140515
  Serious: No
  Sender: FDA-Public Use
  Company Number: None

PATIENT
  Sex: 0

DRUGS (1)
  1. MAGNESIUM SULFATE [Suspect]
     Dosage: 135MG OVER 4 HOURS

REACTIONS (7)
  - Hypotonia [None]
  - Areflexia [None]
  - Movement disorder [None]
  - Medication error [None]
  - Blood magnesium increased [None]
  - Drug dispensing error [None]
  - Incorrect dose administered [None]
